FAERS Safety Report 9436544 (Version 1)
Quarter: 2013Q3

REPORT INFORMATION
  Report Type: Spontaneous
  Country: US (occurrence: US)
  Receive Date: 20130802
  Receipt Date: 20130802
  Transmission Date: 20140515
  Serious: No
  Sender: FDA-Public Use
  Company Number: US-009507513-1308USA000493

PATIENT
  Age: 72 Year
  Sex: Female

DRUGS (1)
  1. JANUVIA [Suspect]
     Dosage: 100 MG, ONCE DAILY, AT UNSPECIFIED TIME
     Route: 048

REACTIONS (2)
  - Night sweats [Recovered/Resolved]
  - Pain in extremity [Recovered/Resolved]
